FAERS Safety Report 18382382 (Version 2)
Quarter: 2021Q1

REPORT INFORMATION
  Report Type: Spontaneous
  Country: US (occurrence: US)
  Receive Date: 20201014
  Receipt Date: 20210114
  Transmission Date: 20210419
  Serious: No
  Sender: FDA-Public Use
  Company Number: US-ALLERGAN-2034663US

PATIENT
  Age: 36 Year
  Sex: Male

DRUGS (2)
  1. UBRELVY [Suspect]
     Active Substance: UBROGEPANT
     Indication: MIGRAINE
     Dosage: 100 MG
     Dates: start: 20200819
  2. UBRELVY [Suspect]
     Active Substance: UBROGEPANT
     Dosage: 50 MG
     Dates: start: 20200223

REACTIONS (2)
  - SARS-CoV-2 test positive [Recovered/Resolved]
  - Drug ineffective [Unknown]

NARRATIVE: CASE EVENT DATE: 20200731
